FAERS Safety Report 10904216 (Version 1)
Quarter: 2015Q1

REPORT INFORMATION
  Report Type: Spontaneous
  Country: US (occurrence: None)
  Receive Date: 20150306
  Receipt Date: 20150306
  Transmission Date: 20150721
  Serious: Yes (Other)
  Sender: FDA-Public Use
  Company Number: 2015ELT00001

PATIENT
  Age: 18 Year
  Sex: Female
  Weight: 33 kg

DRUGS (3)
  1. FENTANYL (FENTANYL) INJECTION [Suspect]
     Active Substance: FENTANYL
     Route: 042
  2. MIDAZOLAM [Suspect]
     Active Substance: MIDAZOLAM\MIDAZOLAM HYDROCHLORIDE
     Route: 042
  3. HYDROMORPHONE (HYDROMORPHONE) INJECTION [Suspect]
     Active Substance: HYDROMORPHONE
     Route: 042

REACTIONS (3)
  - Obstructive airways disorder [None]
  - Respiratory depression [None]
  - Oxygen saturation decreased [None]
